FAERS Safety Report 9092836 (Version 1)
Quarter: 2013Q1

REPORT INFORMATION
  Report Type: Spontaneous
  Country: US (occurrence: None)
  Receive Date: 20130213
  Receipt Date: 20130213
  Transmission Date: 20140127
  Serious: Yes (Other)
  Sender: FDA-Public Use
  Company Number: None

PATIENT
  Age: 77 Year
  Sex: Male

DRUGS (2)
  1. AVASTIN [Suspect]
     Indication: RETINAL VEIN OCCLUSION
     Dosage: 6-13 TIMES PER YEAR
     Route: 031
  2. AVASTIN [Suspect]
     Indication: MACULAR OEDEMA
     Dosage: 6-13 TIMES PER YEAR
     Route: 031

REACTIONS (1)
  - Inflammation [None]
